FAERS Safety Report 5859676-4 (Version None)
Quarter: 2008Q3

REPORT INFORMATION
  Report Type: 
  Country: None (occurrence: None)
  Receive Date: 20080827
  Receipt Date: 20080819
  Transmission Date: 20090109
  Serious: Yes (Other)
  Sender: FDA-Public Use
  Company Number: US-WYE-H05632808

PATIENT
  Sex: Female

DRUGS (1)
  1. ADVIL LIQUI-GELS [Suspect]
     Indication: JAW DISORDER
     Dosage: UNKNOWN
     Route: 048

REACTIONS (3)
  - FALL [None]
  - OEDEMA PERIPHERAL [None]
  - RIB FRACTURE [None]
